FAERS Safety Report 7138186-0 (Version None)
Quarter: 2010Q4

REPORT INFORMATION
  Report Type: 
  Country: None (occurrence: None)
  Receive Date: 20101206
  Receipt Date: 20100505
  Transmission Date: 20110411
  Serious: No
  Sender: FDA-Public Use
  Company Number: US-ABBOTT-10P-163-0643222-00

PATIENT

DRUGS (1)
  1. OMNICEF [Suspect]
     Indication: INFECTION
     Dates: start: 20100101, end: 20100101

REACTIONS (1)
  - FAECES DISCOLOURED [None]
